FAERS Safety Report 7941339-2 (Version None)
Quarter: 2011Q4

REPORT INFORMATION
  Report Type: 
  Country: None (occurrence: None)
  Receive Date: 20111122
  Receipt Date: 20111115
  Transmission Date: 20120403
  Serious: Yes (Hospitalization)
  Sender: FDA-Public Use
  Company Number: VISP-NO-1111S-0485

PATIENT
  Age: 70 Year
  Sex: Male

DRUGS (12)
  1. VISIPAQUE [Suspect]
     Indication: PRODUCT USED FOR UNKNOWN INDICATION
     Dosage: 80 ML, SINGLE DOSE,
     Dates: start: 20111027, end: 20111027
  2. SIMVASTATIN (SINVACOR)(SIMVASTATIN) [Concomitant]
  3. SODIUM POLYSTYRENE SULFONATE (KAYEXALATE)(SODIUM POLYSTYRENE SULFONATE [Concomitant]
  4. ISOSORBIDE MONONITRATE (MONOKET)(ISOSORBIDE MONONITRATE) [Concomitant]
  5. SEVELAMER HYDROCHLORIDE (RENAGEL)(SEVELAMER HYDROCHLORIDE) [Concomitant]
  6. ESOMEPRAZOLE MAGNESIUM (NEXIUM)(ESOMEPRAZOLE MAGNESIUM) [Concomitant]
  7. ACETYLSALICYLATE LYSINE (CARDIRENE)(ACETYLSALICYLATE LYSINE) [Concomitant]
  8. INSULIN HUMAN INJECTION, ISOPHANE (HUMULIN I)(INSULIN HUMAN INJECTION, [Concomitant]
  9. INSULIN HUMAN (HUMULIN R)(INSULIN HUMAN) [Concomitant]
  10. BISOPROLOL (CONGESCOR)(BISOPROLOL) [Concomitant]
  11. CALCITROL (DIFIX)(CALCITRIOL) [Concomitant]
  12. LEVOTHYROXINE SODIUM (EUTIROX)(LEVOTHYROXINE SODIUM) [Concomitant]

REACTIONS (3)
  - PARATHYROID DISORDER [None]
  - PAROTID GLAND ENLARGEMENT [None]
  - SALIVARY GLAND PAIN [None]
